FAERS Safety Report 4971938-1 (Version None)
Quarter: 2006Q2

REPORT INFORMATION
  Report Type: 
  Country: None (occurrence: None)
  Receive Date: 20060407
  Receipt Date: 20060329
  Transmission Date: 20061013
  Serious: Yes (Other)
  Sender: FDA-Public Use
  Company Number: 2006043216

PATIENT
  Age: 56 Year
  Sex: Male
  Weight: 87.9978 kg

DRUGS (1)
  1. LIPITOR [Suspect]
     Indication: BLOOD CHOLESTEROL
     Dosage: 40 MG (40 MG, 1 IN 1 D)

REACTIONS (9)
  - ADRENALECTOMY [None]
  - ANGINA PECTORIS [None]
  - CONDITION AGGRAVATED [None]
  - MEMORY IMPAIRMENT [None]
  - METASTASES TO LIVER [None]
  - METASTASES TO LYMPH NODES [None]
  - METASTASIS [None]
  - MYALGIA [None]
  - RENAL CELL CARCINOMA STAGE UNSPECIFIED [None]
